FAERS Safety Report 20988058 (Version 1)
Quarter: 2022Q2

REPORT INFORMATION
  Report Type: Spontaneous
  Country: US (occurrence: None)
  Receive Date: 20220620
  Receipt Date: 20220620
  Transmission Date: 20220721
  Serious: Yes (Hospitalization)
  Sender: FDA-Public Use
  Company Number: None

PATIENT
  Age: 27 Year
  Sex: Female
  Weight: 70 kg

DRUGS (1)
  1. JUNEL FE 1/20 [Suspect]
     Active Substance: ETHINYL ESTRADIOL\NORETHINDRONE ACETATE
     Indication: Contraception
     Dosage: 1 CYC-CYCLICAL DAILY ORAL?
     Route: 048
     Dates: start: 20210401, end: 20220418

REACTIONS (4)
  - Venous thrombosis limb [None]
  - Axillary vein thrombosis [None]
  - Peripheral venous disease [None]
  - Subclavian vein thrombosis [None]

NARRATIVE: CASE EVENT DATE: 20220418
